FAERS Safety Report 14161697 (Version 2)
Quarter: 2017Q4

REPORT INFORMATION
  Report Type: Report from Study
  Country: IN (occurrence: IN)
  Receive Date: 20171106
  Receipt Date: 20171211
  Transmission Date: 20180321
  Serious: Yes (Other)
  Sender: FDA-Public Use
  Company Number: IN-ROCHE-2019984

PATIENT

DRUGS (3)
  1. RITUXIMAB. [Suspect]
     Active Substance: RITUXIMAB
     Indication: RHEUMATOID ARTHRITIS
     Dosage: FORTNIGHTLY AND THEN A THIRD 500 MG INFUSION AT 6 WEEKS IN CASE OF INADEQUATE RESPONSE (ACR 50)
     Route: 042
  2. METHOTREXATE. [Suspect]
     Active Substance: METHOTREXATE
     Indication: RHEUMATOID ARTHRITIS
     Dosage: MEAN DOSE 18.5 MG WEEKLY
     Route: 065
  3. METHYLPREDNISOLONE. [Suspect]
     Active Substance: METHYLPREDNISOLONE
     Indication: RHEUMATOID ARTHRITIS
     Route: 042

REACTIONS (8)
  - Headache [Unknown]
  - Anaemia [Unknown]
  - Rash [Unknown]
  - Mucosal inflammation [Unknown]
  - Cytopenia [Unknown]
  - Pyrexia [Unknown]
  - Upper respiratory tract infection [Unknown]
  - Dyspepsia [Unknown]
